FAERS Safety Report 18159200 (Version 2)
Quarter: 2020Q3

REPORT INFORMATION
  Report Type: Spontaneous
  Country: US (occurrence: US)
  Receive Date: 20200817
  Receipt Date: 20200901
  Transmission Date: 20201103
  Serious: Yes (Hospitalization, Other)
  Sender: FDA-Public Use
  Company Number: US-SA-2020SA208989

PATIENT

DRUGS (2)
  1. LANTUS [Suspect]
     Active Substance: INSULIN GLARGINE
     Indication: DIABETES MELLITUS
     Dosage: UNK
     Route: 065
  2. VICTOZA [Suspect]
     Active Substance: LIRAGLUTIDE
     Indication: DIABETES MELLITUS
     Dosage: UNK
     Route: 058
     Dates: start: 2018

REACTIONS (5)
  - Hypoacusis [Recovering/Resolving]
  - Eating disorder [Recovering/Resolving]
  - Time perception altered [Recovering/Resolving]
  - Pyrexia [Recovering/Resolving]
  - Brain injury [Recovering/Resolving]

NARRATIVE: CASE EVENT DATE: 2019
